FAERS Safety Report 24720150 (Version 2)
Quarter: 2024Q4

REPORT INFORMATION
  Report Type: Report from Study
  Country: IT (occurrence: IT)
  Receive Date: 20241211
  Receipt Date: 20241213
  Transmission Date: 20250114
  Serious: Yes (Hospitalization)
  Sender: ABBVIE
  Company Number: IT-ABBVIE-6038833

PATIENT
  Age: 72 Year
  Sex: Male

DRUGS (1)
  1. CARBIDOPA\LEVODOPA [Suspect]
     Active Substance: CARBIDOPA\LEVODOPA
     Indication: Parkinson^s disease
     Dosage: DAILY DOSE: 1.843,2 MG; CRL: 0,23ML/H CRB: 0,32ML/H CRH: 0,32ML/H ED: 0,36ML LD: 0ML STOP DATE TE...
     Route: 058
     Dates: start: 20241028

REACTIONS (2)
  - Nodule [Not Recovered/Not Resolved]
  - Infusion site abscess [Not Recovered/Not Resolved]

NARRATIVE: CASE EVENT DATE: 20241205
